FAERS Safety Report 7273386-0 (Version None)
Quarter: 2011Q1

REPORT INFORMATION
  Report Type: 
  Country: None (occurrence: None)
  Receive Date: 20110203
  Receipt Date: 20100809
  Transmission Date: 20110831
  Serious: No
  Sender: FDA-Public Use
  Company Number: US-ABBOTT-10P-163-0663193-00

PATIENT
  Sex: Female
  Weight: 77.18 kg

DRUGS (4)
  1. SYNTHROID [Suspect]
     Dates: start: 20100201, end: 20100701
  2. SYNTHROID [Suspect]
     Dates: start: 20100701
  3. ACIPHEX [Concomitant]
     Indication: GASTROOESOPHAGEAL REFLUX DISEASE
  4. SYNTHROID [Suspect]
     Indication: HYPOTHYROIDISM
     Dates: start: 20090101, end: 20100201

REACTIONS (4)
  - URTICARIA [None]
  - RASH MACULAR [None]
  - BLOOD THYROID STIMULATING HORMONE ABNORMAL [None]
  - SKIN WARM [None]
